FAERS Safety Report 14588760 (Version 2)
Quarter: 2018Q1

REPORT INFORMATION
  Report Type: Report from Study
  Country: US (occurrence: US)
  Receive Date: 20180301
  Receipt Date: 20180328
  Transmission Date: 20180509
  Serious: Yes (Hospitalization)
  Sender: FDA-Public Use
  Company Number: US-ACTELION-A-US2017-149361

PATIENT
  Age: 77 Year
  Sex: Female
  Weight: 51.25 kg

DRUGS (34)
  1. FLUTICASONE. [Concomitant]
     Active Substance: FLUTICASONE
  2. ASPIRIN. [Concomitant]
     Active Substance: ASPIRIN
     Dosage: 81 MG, QD
     Route: 048
     Dates: start: 2006
  3. PLAVIX [Concomitant]
     Active Substance: CLOPIDOGREL BISULFATE
     Dosage: 75 MG, QD
     Route: 048
     Dates: start: 2010
  4. ACYCLOVIR. [Concomitant]
     Active Substance: ACYCLOVIR
     Dosage: 400 MG, BID
     Route: 048
     Dates: start: 2006
  5. OXYGEN. [Concomitant]
     Active Substance: OXYGEN
  6. OPSUMIT [Suspect]
     Active Substance: MACITENTAN
     Indication: PULMONARY ARTERIAL HYPERTENSION
     Dosage: 10 MG, QD
     Route: 048
     Dates: start: 20160824
  7. CALCIUM CARBONATE. [Concomitant]
     Active Substance: CALCIUM CARBONATE
     Dosage: 600 MG, BID
     Route: 048
  8. BUMETANIDE. [Concomitant]
     Active Substance: BUMETANIDE
     Dosage: 2 MG, QD
     Dates: start: 20160606
  9. METOLAZONE. [Concomitant]
     Active Substance: METOLAZONE
     Indication: FLUID OVERLOAD
     Dosage: 5 MG, QD, PRN
     Dates: start: 20161214
  10. QUETIAPINE FUMARATE. [Concomitant]
     Active Substance: QUETIAPINE FUMARATE
     Dosage: 25 MG, PRN
     Dates: start: 20170608
  11. PANTOPRAZOLE [Concomitant]
     Active Substance: PANTOPRAZOLE
  12. TUMS [Concomitant]
     Active Substance: CALCIUM CARBONATE
  13. REVATIO [Concomitant]
     Active Substance: SILDENAFIL CITRATE
     Dosage: 20 MG, TID
     Dates: start: 20150310
  14. DULOXETINE. [Concomitant]
     Active Substance: DULOXETINE
     Dosage: 120 MG, QD
     Route: 048
     Dates: start: 2015
  15. ZETIA [Concomitant]
     Active Substance: EZETIMIBE
     Dosage: 10 MG, QD
     Route: 048
     Dates: start: 2006
  16. LEVOTHYROXINE. [Concomitant]
     Active Substance: LEVOTHYROXINE
     Dosage: 75 MCG, QD
     Route: 048
     Dates: start: 2010
  17. TRICOR [Concomitant]
     Active Substance: FENOFIBRATE
     Dosage: 145 MG, QD
     Route: 048
     Dates: start: 2007
  18. VITAMIN D3 [Concomitant]
     Active Substance: CHOLECALCIFEROL
     Dosage: 50000 U, QD
     Route: 048
  19. TYLENOL [Concomitant]
     Active Substance: ACETAMINOPHEN
     Dosage: UNK, PRN
     Route: 048
  20. CETRIZINE [Concomitant]
     Active Substance: CETIRIZINE HYDROCHLORIDE
     Dosage: 10 MG, QD
     Route: 048
     Dates: start: 2016
  21. FUROSEMIDE. [Concomitant]
     Active Substance: FUROSEMIDE
     Dosage: 40 MG, BID
     Dates: start: 20161027
  22. HYDROXYZINE HCL [Concomitant]
     Active Substance: HYDROXYZINE HYDROCHLORIDE
     Dosage: 25 MG, TID
     Route: 048
     Dates: start: 2011
  23. VITAMIN B6 [Concomitant]
     Active Substance: PYRIDOXINE HYDROCHLORIDE
     Dosage: 200 MG, QD
     Route: 048
  24. FENOFIBRATE. [Concomitant]
     Active Substance: FENOFIBRATE
  25. LOPERAMIDE [Concomitant]
     Active Substance: LOPERAMIDE
  26. LORAZEPAM. [Concomitant]
     Active Substance: LORAZEPAM
  27. UPTRAVI [Suspect]
     Active Substance: SELEXIPAG
     Indication: PULMONARY ARTERIAL HYPERTENSION
     Dosage: 1600 MCG, BID
     Route: 048
     Dates: start: 20160430
  28. UPTRAVI [Suspect]
     Active Substance: SELEXIPAG
     Dosage: UNK
     Route: 048
     Dates: start: 20160311
  29. EZETIMIBE. [Concomitant]
     Active Substance: EZETIMIBE
  30. UPTRAVI [Suspect]
     Active Substance: SELEXIPAG
     Dosage: 1200 MCG, BID
     Route: 048
  31. LORATADINE. [Concomitant]
     Active Substance: LORATADINE
     Dosage: 10 MG, QD
     Dates: start: 20160811
  32. PLENDIL [Concomitant]
     Active Substance: FELODIPINE
     Dosage: 10 MG, QD
     Route: 048
     Dates: start: 2006
  33. VITAMIN B12 [Concomitant]
     Active Substance: CYANOCOBALAMIN
     Dosage: 1000 MCG, QD
     Route: 048
  34. FELODIPINE. [Concomitant]
     Active Substance: FELODIPINE

REACTIONS (25)
  - Polypectomy [Recovered/Resolved]
  - Acute myocardial infarction [Unknown]
  - Abdominal pain [Recovered/Resolved]
  - Haemoglobin decreased [Not Recovered/Not Resolved]
  - Gastric polypectomy [Unknown]
  - Brain natriuretic peptide increased [Recovered/Resolved]
  - Transfusion [Unknown]
  - Large intestinal polypectomy [Unknown]
  - Oxygen therapy [Not Recovered/Not Resolved]
  - Influenza virus test positive [Unknown]
  - Lung infiltration [Unknown]
  - Cardiac failure congestive [Recovered/Resolved]
  - Dysphagia [Recovered/Resolved]
  - Anaemia [Not Recovered/Not Resolved]
  - Dyspnoea [Recovered/Resolved]
  - Pleural effusion [Recovered/Resolved]
  - Pulmonary oedema [Unknown]
  - Oesophagitis [Recovered/Resolved]
  - Condition aggravated [Recovered/Resolved]
  - Gastrointestinal haemorrhage [Unknown]
  - Asthenia [Not Recovered/Not Resolved]
  - Haemostasis [Unknown]
  - Gastrointestinal arteriovenous malformation [Unknown]
  - Fluid overload [Unknown]
  - Troponin increased [Unknown]

NARRATIVE: CASE EVENT DATE: 20161213
